FAERS Safety Report 8171137-9 (Version None)
Quarter: 2012Q1

REPORT INFORMATION
  Report Type: 
  Country: None (occurrence: None)
  Receive Date: 20120228
  Receipt Date: 20111130
  Transmission Date: 20120608
  Serious: No
  Sender: FDA-Public Use
  Company Number: US-BRISTOL-MYERS SQUIBB COMPANY-15895857

PATIENT
  Age: 77 Year
  Sex: Female

DRUGS (2)
  1. ACTOS [Suspect]
     Dates: end: 20110425
  2. ONGLYZA [Suspect]
     Indication: TYPE 2 DIABETES MELLITUS
     Dosage: PREVI:31MAY11
     Route: 048
     Dates: start: 20110425

REACTIONS (4)
  - SKIN BURNING SENSATION [None]
  - ALOPECIA [None]
  - CONSTIPATION [None]
  - DIZZINESS [None]
